FAERS Safety Report 5688910-9 (Version None)
Quarter: 2008Q1

REPORT INFORMATION
  Report Type: 
  Country: None (occurrence: None)
  Receive Date: 20080331
  Receipt Date: 20080320
  Transmission Date: 20080703
  Serious: Yes (Other)
  Sender: FDA-Public Use
  Company Number: HQWYE838316FEB06

PATIENT
  Sex: Female

DRUGS (7)
  1. PREMPRO [Suspect]
     Indication: HORMONE REPLACEMENT THERAPY
  2. PREMARIN [Suspect]
     Indication: OESTROGEN REPLACEMENT THERAPY
  3. MEDROXYPROGESTERONE ACETATE [Suspect]
     Indication: HORMONE REPLACEMENT THERAPY
  4. OGEN [Suspect]
     Indication: HORMONE REPLACEMENT THERAPY
  5. ESTROPIPATE [Suspect]
     Indication: HORMONE REPLACEMENT THERAPY
  6. PROVERA [Suspect]
     Indication: HORMONE REPLACEMENT THERAPY
  7. FEMHRT [Suspect]
     Indication: HORMONE REPLACEMENT THERAPY

REACTIONS (1)
  - BREAST CANCER [None]
